FAERS Safety Report 6236276-8 (Version None)
Quarter: 2009Q2

REPORT INFORMATION
  Report Type: 
  Country: None (occurrence: None)
  Receive Date: 20090619
  Receipt Date: 20090609
  Transmission Date: 20091009
  Serious: Yes (Life-Threatening)
  Sender: FDA-Public Use
  Company Number: JP-WYE-H09554209

PATIENT
  Sex: Male
  Weight: 48 kg

DRUGS (13)
  1. ZOSYN [Suspect]
     Indication: PNEUMONIA ASPIRATION
     Route: 041
     Dates: start: 20090428, end: 20090428
  2. ALEVIATIN [Concomitant]
     Indication: EPILEPSY
     Route: 048
  3. TEGRETOL [Concomitant]
     Indication: EPILEPSY
     Route: 048
  4. CLOBAZAM [Concomitant]
     Indication: EPILEPSY
     Route: 048
  5. PANTOSIN [Concomitant]
     Indication: CONSTIPATION
     Route: 048
     Dates: start: 20020101
  6. IMMUNE GLOBULIN INTRAVENOUS (HUMAN) [Concomitant]
     Indication: DRUG USE FOR UNKNOWN INDICATION
     Route: 041
     Dates: start: 20090428, end: 20090430
  7. PHENOBARBITAL TAB [Concomitant]
     Indication: EPILEPSY
     Route: 048
     Dates: start: 20070101
  8. THYRADIN-S [Concomitant]
     Indication: THYROID DISORDER
     Route: 048
     Dates: start: 20070101
  9. CONTOMIN [Concomitant]
     Indication: EMOTIONAL DISORDER
     Route: 048
     Dates: start: 20090409
  10. AMIKACIN [Concomitant]
     Indication: PNEUMONIA
     Route: 041
     Dates: start: 20090428, end: 20090501
  11. NEULEPTIL [Concomitant]
     Indication: EMOTIONAL DISORDER
     Route: 048
  12. WARFARIN POTASSIUM [Suspect]
     Indication: DEEP VEIN THROMBOSIS
     Route: 048
     Dates: start: 20030901, end: 20090428
  13. POLYCARBOPHIL CALCIUM [Concomitant]
     Indication: CONSTIPATION
     Route: 048
     Dates: start: 20020101

REACTIONS (1)
  - PULMONARY HAEMORRHAGE [None]
